FAERS Safety Report 26179286 (Version 1)
Quarter: 2025Q4

REPORT INFORMATION
  Report Type: Spontaneous
  Country: GB (occurrence: GB)
  Receive Date: 20251219
  Receipt Date: 20251219
  Transmission Date: 20260118
  Serious: Yes (Hospitalization)
  Sender: TEVA
  Company Number: GB-MLMSERVICE-20251117-PI717541-00031-1

PATIENT
  Age: 40 Year
  Sex: Male

DRUGS (3)
  1. OMEPRAZOLE [Suspect]
     Active Substance: OMEPRAZOLE
     Indication: Oesophageal ulcer haemorrhage
     Route: 042
     Dates: start: 20240301
  2. FERINJECT [Suspect]
     Active Substance: FERRIC CARBOXYMALTOSE
     Indication: Iron deficiency anaemia
     Dosage: 1000 MG (PRIOR TO DISCHARGE)
     Route: 042
     Dates: start: 20240328
  3. EPINEPHRINE [Concomitant]
     Active Substance: EPINEPHRINE
     Indication: Oesophageal ulcer haemorrhage
     Route: 065
     Dates: start: 20240301

REACTIONS (1)
  - Hypophosphataemia [Recovering/Resolving]

NARRATIVE: CASE EVENT DATE: 20240401
